FAERS Safety Report 15591043 (Version 10)
Quarter: 2019Q2

REPORT INFORMATION
  Report Type: Spontaneous
  Country: CA (occurrence: CA)
  Receive Date: 20181106
  Receipt Date: 20190620
  Transmission Date: 20190711
  Serious: Yes (Other)
  Sender: FDA-Public Use
  Company Number: CA-PFIZER INC-2016248769

PATIENT
  Age: 47 Year
  Sex: Female

DRUGS (8)
  1. STELARA [Suspect]
     Active Substance: USTEKINUMAB
     Dosage: 90 MG, UNK
     Route: 058
  2. SORIATANE [Suspect]
     Active Substance: ACITRETIN
     Dosage: UNK
     Route: 065
  3. ENBREL [Suspect]
     Active Substance: ETANERCEPT
     Dosage: 45 MG, 2 TIMES/WK
     Route: 065
  4. METHOTREXATE SODIUM. [Suspect]
     Active Substance: METHOTREXATE SODIUM
     Dosage: UNK
     Route: 065
  5. METHOTREXATE SODIUM. [Suspect]
     Active Substance: METHOTREXATE SODIUM
     Dosage: UNK, WEEKLY
     Route: 065
  6. NEORAL [Suspect]
     Active Substance: CYCLOSPORINE
     Indication: PSORIASIS
     Dosage: 200 MG, 1 EVERY 1 DAY(S)
     Route: 048
  7. RAPTIVA [Suspect]
     Active Substance: EFALIZUMAB
     Dosage: UNK
     Route: 058
  8. REMICADE [Suspect]
     Active Substance: INFLIXIMAB
     Dosage: UNK
     Route: 042

REACTIONS (10)
  - Erythema [Unknown]
  - Product use issue [Unknown]
  - Decreased appetite [Unknown]
  - Nausea [Unknown]
  - Condition aggravated [Unknown]
  - Psoriasis [Unknown]
  - Vomiting [Unknown]
  - Hypersensitivity [Unknown]
  - Fatigue [Unknown]
  - Myalgia [Unknown]
